FAERS Safety Report 9858888 (Version 1)
Quarter: 2014Q1

REPORT INFORMATION
  Report Type: Spontaneous
  Country: US (occurrence: US)
  Receive Date: 20140131
  Receipt Date: 20140131
  Transmission Date: 20141002
  Serious: Yes (Hospitalization)
  Sender: FDA-Public Use
  Company Number: PHHY2014US008948

PATIENT
  Age: 70 Year
  Sex: Male

DRUGS (4)
  1. ALLOPURINOL [Suspect]
  2. METOPROLOL [Concomitant]
     Dosage: 25 MG, QD
  3. FERROUS SULFATE [Concomitant]
     Dosage: 324 MG, QD
  4. LANSOPRAZOLE [Concomitant]
     Dosage: 15 MG, QD

REACTIONS (10)
  - Oesophageal stenosis [Recovering/Resolving]
  - Dysphagia [Recovering/Resolving]
  - Toxic epidermal necrolysis [Unknown]
  - Scar [Unknown]
  - Dermatitis [Unknown]
  - Pallor [Unknown]
  - Macule [Unknown]
  - Erythema [Unknown]
  - Blister [Unknown]
  - Epidermal necrosis [Unknown]
